FAERS Safety Report 4600987-8 (Version None)
Quarter: 2005Q1

REPORT INFORMATION
  Report Type: 
  Country: None (occurrence: None)
  Receive Date: 20050307
  Receipt Date: 20050307
  Transmission Date: 20050727
  Serious: Yes (Life-Threatening)
  Sender: FDA-Public Use
  Company Number: None

PATIENT
  Age: 66 Year
  Sex: Female
  Weight: 77.1115 kg

DRUGS (3)
  1. TAXOL [Suspect]
     Indication: BREAST CANCER
     Dosage: 175MG/M2 330 MG IV
     Route: 042
     Dates: start: 20050113
  2. NEULASTA [Suspect]
     Dosage: 6 MG SQ
     Route: 058
     Dates: start: 20050114
  3. NEULASTA [Suspect]
     Dosage: 6 MG SQ
     Route: 058
     Dates: start: 20050127

REACTIONS (1)
  - NEUTROPENIA [None]
